FAERS Safety Report 7937844-5 (Version None)
Quarter: 2011Q4

REPORT INFORMATION
  Report Type: 
  Country: None (occurrence: None)
  Receive Date: 20111123
  Receipt Date: 20111116
  Transmission Date: 20120403
  Serious: Yes (Hospitalization)
  Sender: FDA-Public Use
  Company Number: US-MERCK-1111USA02217

PATIENT
  Age: 54 Year
  Sex: Female

DRUGS (6)
  1. OMEPRAZOLE [Concomitant]
     Route: 065
  2. CLONAZEPAM [Concomitant]
     Dosage: DAILY AS NEEDED
     Route: 065
  3. ACYCLOVIR [Concomitant]
     Route: 065
  4. ISENTRESS [Suspect]
     Indication: HIV INFECTION
     Dosage: 1 STANDARD PACKAGE BOTTLE OF 6
     Route: 048
     Dates: start: 20110411, end: 20110928
  5. OXYCODONE [Concomitant]
     Route: 065
  6. TRUVADA [Suspect]
     Route: 065
     Dates: start: 20110411

REACTIONS (2)
  - LIVER FUNCTION TEST ABNORMAL [None]
  - TOXICITY TO VARIOUS AGENTS [None]
